FAERS Safety Report 17995614 (Version 1)
Quarter: 2020Q3

REPORT INFORMATION
  Report Type: Spontaneous
  Country: SE (occurrence: SE)
  Receive Date: 20200708
  Receipt Date: 20200708
  Transmission Date: 20201103
  Serious: Yes (Other)
  Sender: FDA-Public Use
  Company Number: SE-TEVA-2020-SE-1797611

PATIENT
  Age: 49 Year
  Sex: Female

DRUGS (4)
  1. PACLITAXEL. [Suspect]
     Active Substance: PACLITAXEL
     Indication: BREAST CANCER
     Dosage: 80 MG/M2
     Route: 042
     Dates: start: 20200311, end: 20200513
  2. ZOLADEX [Concomitant]
     Active Substance: GOSERELIN ACETATE
  3. LETROZOLE. [Concomitant]
     Active Substance: LETROZOLE
  4. LONQUEX [Concomitant]
     Active Substance: LIPEGFILGRASTIM

REACTIONS (1)
  - Cystitis [Recovering/Resolving]

NARRATIVE: CASE EVENT DATE: 20200428
